FAERS Safety Report 6435861-8 (Version None)
Quarter: 2009Q4

REPORT INFORMATION
  Report Type: 
  Country: None (occurrence: None)
  Receive Date: 20091111
  Receipt Date: 20091029
  Transmission Date: 20100525
  Serious: No
  Sender: FDA-Public Use
  Company Number: US-ELI_LILLY_AND_COMPANY-US200910004745

PATIENT
  Age: 70 Year
  Sex: Male

DRUGS (12)
  1. CYMBALTA [Suspect]
     Indication: NEUROPATHY PERIPHERAL
     Dosage: 1 D/F, UNK
  2. AMIODARONE [Concomitant]
     Dosage: 200 MG, UNK
  3. ASPIRIN [Concomitant]
     Dosage: 81 MG, UNK
  4. COUMADIN [Concomitant]
     Dosage: 1 MG, AS NEEDED
  5. COUMADIN [Concomitant]
     Dosage: 2 MG, AS NEEDED
  6. LISINOPRIL [Concomitant]
     Dosage: 10 MG, DAILY (1/D)
  7. PLAVIX [Concomitant]
     Dosage: 70 MG, DAILY (1/D)
  8. ZOCOR [Concomitant]
     Dosage: 20 MG, DAILY (1/D)
  9. PRILOSEC [Concomitant]
     Dosage: 40 MG, DAILY (1/D)
  10. POTASSIUM CHLORIDE [Concomitant]
     Dosage: 20 MG, DAILY (1/D)
  11. DIGOXIN [Concomitant]
     Dosage: 0.25 MG, DAILY (1/D)
  12. METFORMIN HCL [Concomitant]
     Indication: BLOOD GLUCOSE INCREASED
     Dosage: 500 MG, 2/D

REACTIONS (1)
  - BLOOD GLUCOSE INCREASED [None]
